FAERS Safety Report 10872397 (Version 3)
Quarter: 2015Q1

REPORT INFORMATION
  Report Type: Report from Study
  Country: US (occurrence: US)
  Receive Date: 20150226
  Receipt Date: 20150324
  Transmission Date: 20150721
  Serious: Yes (Hospitalization, Other)
  Sender: FDA-Public Use
  Company Number: PHEH2015US003726

PATIENT
  Sex: Female

DRUGS (1)
  1. GILENYA [Suspect]
     Active Substance: FINGOLIMOD HYDROCHLORIDE
     Indication: MULTIPLE SCLEROSIS
     Dosage: 0.5 MG, QD
     Route: 048
     Dates: start: 20140421

REACTIONS (8)
  - Memory impairment [Recovered/Resolved]
  - Seizure [Unknown]
  - Tremor [Recovered/Resolved]
  - Dehydration [Unknown]
  - Loss of consciousness [Unknown]
  - Dysarthria [Recovered/Resolved]
  - Multiple sclerosis relapse [Recovered/Resolved]
  - Gait disturbance [Recovered/Resolved]
